FAERS Safety Report 15722808 (Version 1)
Quarter: 2018Q4

REPORT INFORMATION
  Report Type: Spontaneous
  Country: AU (occurrence: AU)
  Receive Date: 20181214
  Receipt Date: 20181214
  Transmission Date: 20190205
  Serious: Yes (Hospitalization, Other)
  Sender: FDA-Public Use
  Company Number: AU-SAKK-2018SA326488AA

PATIENT
  Age: 26 Year
  Sex: Female

DRUGS (3)
  1. ENOXAPARIN SODIUM. [Suspect]
     Active Substance: ENOXAPARIN SODIUM
     Indication: PROPHYLAXIS
     Dosage: UNK MG, QD
  2. ASPIRIN [ACETYLSALICYLIC ACID] [Concomitant]
     Active Substance: ASPIRIN
     Dosage: 100 MG, QD
  3. CEPHALEXINE [Suspect]
     Active Substance: CEPHALEXIN
     Indication: INFECTION
     Dosage: 500 MG

REACTIONS (33)
  - Sinus tachycardia [Unknown]
  - Infarction [Not Recovered/Not Resolved]
  - Acute kidney injury [Recovered/Resolved]
  - Hyperhidrosis [Unknown]
  - Oliguria [Recovered/Resolved]
  - Renal impairment [Recovered/Resolved]
  - Malaise [Unknown]
  - Blood lactic acid increased [Unknown]
  - Hypoxia [Unknown]
  - Tachycardia [Unknown]
  - Electrocardiogram QT prolonged [Unknown]
  - Abdominal tenderness [Unknown]
  - Nausea [Unknown]
  - Abdominal pain [Unknown]
  - Pyrexia [Unknown]
  - Anuria [Recovered/Resolved]
  - Electrocardiogram ST segment elevation [Unknown]
  - Sepsis [Unknown]
  - Vascular pseudoaneurysm [Unknown]
  - Transaminases increased [Recovered/Resolved]
  - Tachypnoea [Unknown]
  - Antiphospholipid syndrome [Unknown]
  - Electrocardiogram ST segment depression [Unknown]
  - Butterfly rash [Unknown]
  - Hypotension [Unknown]
  - Haematoma [Unknown]
  - Impaired healing [Unknown]
  - Hypokinesia [Unknown]
  - Ischaemia [Not Recovered/Not Resolved]
  - Systolic dysfunction [Unknown]
  - Condition aggravated [Unknown]
  - Metabolic acidosis [Unknown]
  - Exposure during pregnancy [Unknown]
